FAERS Safety Report 20180878 (Version 1)
Quarter: 2021Q4

REPORT INFORMATION
  Report Type: Spontaneous
  Country: CN (occurrence: CN)
  Receive Date: 20211214
  Receipt Date: 20211214
  Transmission Date: 20220303
  Serious: Yes (Hospitalization, Other)
  Sender: FDA-Public Use
  Company Number: CN-GLAXOSMITHKLINE-CN2021APC247423

PATIENT
  Age: 31 Year
  Sex: Female

DRUGS (5)
  1. LAMOTRIGINE [Interacting]
     Active Substance: LAMOTRIGINE
     Indication: Depression
     Dosage: 12.5 MG, 1D
  2. LAMOTRIGINE [Interacting]
     Active Substance: LAMOTRIGINE
     Dosage: 25 MG, 1D ON THE 7TH DAY
  3. VALPROATE MAGNESIUM [Interacting]
     Active Substance: VALPROATE MAGNESIUM
     Indication: Depression
     Dosage: UNK
     Route: 048
  4. VALPROATE SODIUM [Interacting]
     Active Substance: VALPROATE SODIUM
     Indication: Depression
     Dosage: BID, 250 MG ONCE IN MORNING, 500 MG ONCE IN EVENING
  5. QUETIAPINE FUMARATE [Interacting]
     Active Substance: QUETIAPINE FUMARATE
     Indication: Depression
     Dosage: ONCE PER NIGHT, 200 MG EACH TIME

REACTIONS (21)
  - Toxic epidermal necrolysis [Unknown]
  - Rash [Recovered/Resolved]
  - Pruritus [Unknown]
  - Oral mucosa erosion [Recovered/Resolved]
  - Feeding disorder [Unknown]
  - Erythema multiforme [Unknown]
  - Localised oedema [Unknown]
  - Ulcer [Recovered/Resolved]
  - Rash maculo-papular [Recovered/Resolved]
  - Blister [Recovered/Resolved]
  - Oedema mucosal [Unknown]
  - Klebsiella infection [Unknown]
  - Pyrexia [Unknown]
  - Condition aggravated [Unknown]
  - Epidermolysis bullosa [Unknown]
  - Pneumonia [Unknown]
  - Hypoproteinaemia [Unknown]
  - Electrolyte imbalance [Unknown]
  - Anaemia [Unknown]
  - Keratitis [Unknown]
  - Drug interaction [Unknown]
